FAERS Safety Report 12328530 (Version 3)
Quarter: 2016Q3

REPORT INFORMATION
  Report Type: Spontaneous
  Country: US (occurrence: US)
  Receive Date: 20160503
  Receipt Date: 20160808
  Transmission Date: 20161109
  Serious: No
  Sender: FDA-Public Use
  Company Number: US-BEH-2015049015

PATIENT
  Age: 34 Year
  Sex: Female
  Weight: 56 kg

DRUGS (46)
  1. AUGMENTIN [Concomitant]
     Active Substance: AMOXICILLIN\CLAVULANATE POTASSIUM
  2. AMBIEN [Concomitant]
     Active Substance: ZOLPIDEM TARTRATE
  3. LOVENOX [Concomitant]
     Active Substance: ENOXAPARIN SODIUM
  4. MULTIVITAMINS [Concomitant]
     Active Substance: VITAMINS
  5. ALPHA LIPOIC ACID [Concomitant]
     Active Substance: .ALPHA.-LIPOIC ACID
  6. TESTOSTERONE CREAM [Concomitant]
     Active Substance: TESTOSTERONE
  7. POLYETHYLENE [Concomitant]
     Active Substance: HIGH DENSITY POLYETHYLENE
  8. ACTIGALL [Concomitant]
     Active Substance: URSODIOL
  9. LIDOCAINE. [Concomitant]
     Active Substance: LIDOCAINE
  10. EPIPEN [Concomitant]
     Active Substance: EPINEPHRINE
  11. POLYETHYLENE GLYCOL [Concomitant]
     Active Substance: POLYETHYLENE GLYCOLS
  12. DIFLUCAN [Concomitant]
     Active Substance: FLUCONAZOLE
  13. ZANTAC [Concomitant]
     Active Substance: RANITIDINE HYDROCHLORIDE
  14. ADVIL [Concomitant]
     Active Substance: IBUPROFEN
  15. MUPIROCIN. [Concomitant]
     Active Substance: MUPIROCIN
  16. GLUTATHIONE [Concomitant]
     Active Substance: GLUTATHIONE
  17. HIZENTRA [Suspect]
     Active Substance: HUMAN IMMUNOGLOBULIN G
     Indication: SELECTIVE IGG SUBCLASS DEFICIENCY
     Dosage: IN DIVIDED DOSES 3 TIMES PER WEEK EVERY WEEK
     Route: 058
  18. CLARITHROMYCIN. [Concomitant]
     Active Substance: CLARITHROMYCIN
  19. OXYCODONE [Concomitant]
     Active Substance: OXYCODONE
  20. TRAMADOL. [Concomitant]
     Active Substance: TRAMADOL
  21. VITAMIN D [Concomitant]
     Active Substance: CHOLECALCIFEROL
  22. MAGNESIUM CHLORIDE. [Concomitant]
     Active Substance: MAGNESIUM CHLORIDE
  23. PROTONIX DR [Concomitant]
  24. SYNTHROID [Concomitant]
     Active Substance: LEVOTHYROXINE SODIUM
  25. ACETAMINOPHEN. [Concomitant]
     Active Substance: ACETAMINOPHEN
  26. AMOXICILLIN. [Concomitant]
     Active Substance: AMOXICILLIN
  27. ASPIRIN. [Concomitant]
     Active Substance: ASPIRIN
  28. DOXYCYCLINE. [Concomitant]
     Active Substance: DOXYCYCLINE
  29. HIZENTRA [Suspect]
     Active Substance: HUMAN IMMUNOGLOBULIN G
     Indication: PRIMARY IMMUNODEFICIENCY SYNDROME
     Dosage: IN DIVIDED DOSES 3 TIMES PER WEEK EVERY WEEK
     Route: 058
  30. HIZENTRA [Suspect]
     Active Substance: HUMAN IMMUNOGLOBULIN G
  31. ROCEPHIN [Concomitant]
     Active Substance: CEFTRIAXONE SODIUM
  32. DIPHENHYDRAMINE. [Concomitant]
     Active Substance: DIPHENHYDRAMINE
  33. LIDOCAINE/PRILOCAINE [Concomitant]
     Active Substance: LIDOCAINE\PRILOCAINE
  34. ZOFRAN [Concomitant]
     Active Substance: ONDANSETRON HYDROCHLORIDE
  35. PERCOCET [Concomitant]
     Active Substance: ACETAMINOPHEN\OXYCODONE HYDROCHLORIDE
  36. DHEA [Concomitant]
     Active Substance: PRASTERONE
  37. SKELAXIN [Concomitant]
     Active Substance: METAXALONE
  38. NATURE-THROID [Concomitant]
     Active Substance: THYROID, PORCINE
  39. BUDESONIDE. [Concomitant]
     Active Substance: BUDESONIDE
  40. PROMETHAZINE [Concomitant]
     Active Substance: PROMETHAZINE\PROMETHAZINE HYDROCHLORIDE
  41. SELENIUM [Concomitant]
     Active Substance: SELENIUM
  42. HIZENTRA [Suspect]
     Active Substance: HUMAN IMMUNOGLOBULIN G
  43. AMPICILLIN [Concomitant]
     Active Substance: AMPICILLIN
  44. DILAUDID [Concomitant]
     Active Substance: HYDROMORPHONE HYDROCHLORIDE
  45. SACCHAROMYCES BOULARDI LYO [Concomitant]
  46. MOTRIN [Concomitant]
     Active Substance: IBUPROFEN

REACTIONS (3)
  - Drug dose omission [Unknown]
  - Headache [Recovered/Resolved]
  - Gastrointestinal viral infection [Unknown]

NARRATIVE: CASE EVENT DATE: 20150202
